FAERS Safety Report 10008684 (Version 1)
Quarter: 2014Q1

REPORT INFORMATION
  Report Type: Spontaneous
  Country: US (occurrence: US)
  Receive Date: 20140312
  Receipt Date: 20140312
  Transmission Date: 20141002
  Serious: No
  Sender: FDA-Public Use
  Company Number: US-INCYTE CORPORATION-2012IN000320

PATIENT
  Age: 60 Year
  Sex: Female

DRUGS (5)
  1. JAKAFI [Suspect]
     Indication: MYELOFIBROSIS
     Dosage: 20 MG, BID
  2. XANAX [Concomitant]
  3. PRILOSEC [Concomitant]
  4. MELATONIN [Concomitant]
  5. ASPIRIN [Concomitant]
     Dosage: 81 MG, UNK

REACTIONS (3)
  - Nausea [Recovered/Resolved]
  - Dizziness [Recovered/Resolved]
  - Increased tendency to bruise [Unknown]
